FAERS Safety Report 18304351 (Version 1)
Quarter: 2020Q3

REPORT INFORMATION
  Report Type: Spontaneous
  Country: GB (occurrence: GB)
  Receive Date: 20200924
  Receipt Date: 20200924
  Transmission Date: 20201103
  Serious: Yes (Other)
  Sender: FDA-Public Use
  Company Number: GB-B.I. PHARMACEUTICALS,INC./RIDGEFIELD-2020-BI-049712

PATIENT
  Age: 86 Year
  Sex: Male
  Weight: 53.6 kg

DRUGS (1)
  1. TRAJENTA [Suspect]
     Active Substance: LINAGLIPTIN
     Indication: INSULIN-REQUIRING TYPE 2 DIABETES MELLITUS
     Route: 048

REACTIONS (3)
  - Blister [Unknown]
  - Pemphigus [Not Recovered/Not Resolved]
  - Infected skin ulcer [Unknown]
